FAERS Safety Report 15703743 (Version 1)
Quarter: 2018Q4

REPORT INFORMATION
  Report Type: Spontaneous
  Country: IT (occurrence: IT)
  Receive Date: 20181210
  Receipt Date: 20181210
  Transmission Date: 20190205
  Serious: Yes (Hospitalization)
  Sender: FDA-Public Use
  Company Number: IT-GLAXOSMITHKLINE-IT2018219044

PATIENT
  Age: 93 Year
  Sex: Female
  Weight: 86 kg

DRUGS (1)
  1. FLIXODERM [Suspect]
     Active Substance: FLUTICASONE PROPIONATE
     Indication: DERMATITIS
     Dosage: UNK
     Route: 065
     Dates: start: 20180707, end: 20180725

REACTIONS (3)
  - Rash [Recovered/Resolved]
  - Blister [Recovered/Resolved]
  - Oedema peripheral [Recovered/Resolved]

NARRATIVE: CASE EVENT DATE: 20180710
